FAERS Safety Report 9185625 (Version 1)
Quarter: 2013Q1

REPORT INFORMATION
  Report Type: Spontaneous
  Country: US (occurrence: None)
  Receive Date: 20130321
  Receipt Date: 20130321
  Transmission Date: 20140127
  Serious: No
  Sender: FDA-Public Use
  Company Number: KAD201303-000368

PATIENT
  Age: 37 Year
  Sex: Female

DRUGS (4)
  1. RIBAVIRIN (RIBAVIRIN) [Suspect]
  2. PEGYLATED INTERFERON [Suspect]
  3. TELAPREVIR (TELAPREVIR) [Suspect]
     Route: 048
  4. CHEMOTHERAPY [Concomitant]

REACTIONS (3)
  - Mobility decreased [None]
  - Myalgia [None]
  - Asthenia [None]
